FAERS Safety Report 9249010 (Version 1)
Quarter: 2013Q1

REPORT INFORMATION
  Report Type: Spontaneous
  Country: US (occurrence: None)
  Receive Date: 20130305
  Receipt Date: 20130305
  Transmission Date: 20140127
  Serious: Yes (Hospitalization, Other)
  Sender: FDA-Public Use
  Company Number: 163-21880-12091047

PATIENT
  Age: 69 Year
  Sex: Female

DRUGS (10)
  1. REVLIMID [Suspect]
     Indication: PLASMA CELL MYELOMA
     Dosage: 25 MG, 14 IN 21 D, PO
     Route: 048
     Dates: start: 20120522
  2. VICODIN ES (VICODIN) [Concomitant]
  3. ACYCLOVIR (ACICLOVIR) (ACICLOVIR) [Concomitant]
  4. ZOFRAN (ONDANSETRON HYDROCHLORIDE) [Concomitant]
  5. DECADRON (DEXAMETHASONE) [Concomitant]
  6. METOPROLOL (METOPROLOL) [Concomitant]
  7. LOSARTIN (LOSARTAN POTASSIUM) [Concomitant]
  8. METFORMIN (METFORMIN) [Concomitant]
  9. HCTZ (HYDROCHLOROTHIAZIDE) [Concomitant]
  10. FENTANYL (FENTANYL) [Concomitant]

REACTIONS (3)
  - Pulmonary embolism [None]
  - Hypoxia [None]
  - Dyspnoea [None]
